FAERS Safety Report 4780376-6 (Version None)
Quarter: 2005Q3

REPORT INFORMATION
  Report Type: 
  Country: None (occurrence: None)
  Receive Date: 20050926
  Receipt Date: 20050913
  Transmission Date: 20060218
  Serious: Yes (Disabling, Congenital Anomaly)
  Sender: FDA-Public Use
  Company Number: 2003144872CH

PATIENT
  Weight: 2.9937 kg

DRUGS (13)
  1. XANAX [Suspect]
     Indication: BORDERLINE PERSONALITY DISORDER
     Dosage: 2 MG, PLACENTAL
     Dates: start: 20020401, end: 20020807
  2. MEFENAMIC ACID [Suspect]
     Indication: BORDERLINE PERSONALITY DISORDER
     Dosage: (AS NECESSARY), PLACENTAL
     Dates: end: 20020807
  3. OXAZEPAM [Suspect]
     Indication: PERSONALITY DISORDER
     Dosage: 30 MG (15 MG, 1 IN 1 D), PLACENTAL
     Dates: start: 20020614, end: 20020807
  4. ZYPREXA [Suspect]
     Indication: PERSONALITY DISORDER
     Dosage: 2.5 MG (2.5 MG, 1 IN 1 D), PLACENTAL
     Dates: start: 20020401, end: 20020807
  5. NEFAZODONE HCL [Suspect]
     Indication: PERSONALITY DISORDER
     Dosage: 200-100 MG, PLACENTAL; SEE IMAGE
     Dates: start: 20020401, end: 20020807
  6. NEFAZODONE HCL [Suspect]
     Indication: PERSONALITY DISORDER
     Dosage: 200-100 MG, PLACENTAL; SEE IMAGE
     Dates: start: 20020508, end: 20020807
  7. TOPAMAX [Suspect]
     Dosage: 200 MG, PLACENTAL; SEE IMAGE
     Dates: start: 20020508, end: 20020807
  8. TOPAMAX [Suspect]
     Dosage: 200 MG, PLACENTAL; SEE IMAGE
     Dates: start: 20020614, end: 20020807
  9. EFFEXOR [Concomitant]
  10. TRAZODONE HCL [Concomitant]
  11. ENTUMIN (CLOTIAPINE) [Concomitant]
  12. PRIMPERAN TAB [Concomitant]
  13. PROMAZINE HCL [Concomitant]

REACTIONS (4)
  - CONGENITAL HAND MALFORMATION [None]
  - DRUG EXPOSURE DURING PREGNANCY [None]
  - NEONATAL DISORDER [None]
  - SYNDACTYLY [None]
